FAERS Safety Report 16636423 (Version 1)
Quarter: 2019Q3

REPORT INFORMATION
  Report Type: Spontaneous
  Country: US (occurrence: US)
  Receive Date: 20190613
  Receipt Date: 20190613
  Transmission Date: 20191004
  Serious: Yes (Hospitalization)
  Sender: FDA-Public Use
  Company Number: None

PATIENT
  Age: 76 Year
  Sex: Female

DRUGS (16)
  1. BUMETANIDE. [Concomitant]
     Active Substance: BUMETANIDE
  2. JANUVIA [Concomitant]
     Active Substance: SITAGLIPTIN PHOSPHATE
  3. LANTUS INJ [Concomitant]
  4. SILDENAFIL. [Concomitant]
     Active Substance: SILDENAFIL
  5. WARFARIN [Concomitant]
     Active Substance: WARFARIN
  6. METFORMIN [Concomitant]
     Active Substance: METFORMIN HYDROCHLORIDE
  7. METOPROL TAR [Concomitant]
  8. PEN NEEDLES MIS [Concomitant]
  9. SIMVASTATIN. [Concomitant]
     Active Substance: SIMVASTATIN
  10. ADCIRCA [Suspect]
     Active Substance: TADALAFIL
     Indication: PULMONARY ARTERIAL HYPERTENSION
     Dosage: ?          OTHER FREQUENCY:Q AM;?
     Route: 048
     Dates: start: 20180209
  11. LANTUS SOLOS INJ [Concomitant]
  12. DIGOX [Concomitant]
     Active Substance: DIGOXIN
  13. METOLAZONE. [Concomitant]
     Active Substance: METOLAZONE
  14. TRUPLUS LANC MIS [Concomitant]
  15. MIDRINE [Concomitant]
     Active Substance: UNSPECIFIED INGREDIENT
  16. TURE METRIX TES GLUCOSE [Concomitant]

REACTIONS (1)
  - Disease progression [None]

NARRATIVE: CASE EVENT DATE: 20190523
